FAERS Safety Report 14988701 (Version 1)
Quarter: 2018Q2

REPORT INFORMATION
  Report Type: Spontaneous
  Country: FR (occurrence: FR)
  Receive Date: 20180608
  Receipt Date: 20180608
  Transmission Date: 20180711
  Serious: Yes (Other)
  Sender: FDA-Public Use
  Company Number: FR-PFIZER INC-2018228192

PATIENT
  Age: 28 Year
  Sex: Male
  Weight: 88 kg

DRUGS (10)
  1. ETOPOSIDE TEVA [Suspect]
     Active Substance: ETOPOSIDE
     Indication: HODGKIN^S DISEASE
     Dosage: 200 MG/M2, CYCLIC
     Route: 041
     Dates: start: 20171019, end: 20171021
  2. LOVENOX [Concomitant]
     Active Substance: ENOXAPARIN SODIUM
     Route: 058
     Dates: start: 20171023, end: 20171128
  3. ENDOXAN /00021101/ [Suspect]
     Active Substance: CYCLOPHOSPHAMIDE
     Indication: HODGKIN^S DISEASE
     Dosage: 1200 MG/M2, CYCLIC
     Route: 041
     Dates: start: 20171019, end: 20171019
  4. BLEOMYCINE [Suspect]
     Active Substance: BLEOMYCIN SULFATE
     Indication: HODGKIN^S DISEASE
     Dosage: 10 MG, CYCLIC
     Route: 041
     Dates: start: 20171026, end: 20171026
  5. VINCRISTINE SULFATE. [Suspect]
     Active Substance: VINCRISTINE SULFATE
     Indication: HODGKIN^S DISEASE
     Dosage: 1.4 MG/M2, CYCLIC
     Route: 041
     Dates: start: 20171026, end: 20171026
  6. FLAGYL [Concomitant]
     Active Substance: METRONIDAZOLE\METRONIDAZOLE HYDROCHLORIDE
     Route: 048
     Dates: start: 20171016, end: 20171027
  7. PREDNISONE. [Concomitant]
     Active Substance: PREDNISONE
     Dosage: 40 MG, CYCLIC
     Route: 048
     Dates: start: 20171019, end: 20171030
  8. VALACICLOVIR [Concomitant]
     Active Substance: VALACYCLOVIR HYDROCHLORIDE
     Dosage: 500 MG, 1X/DAY
     Route: 048
     Dates: start: 20171023
  9. NATULAN [Suspect]
     Active Substance: PROCARBAZINE HYDROCHLORIDE
     Indication: HODGKIN^S DISEASE
     Dosage: 200 MG, 1X/DAY
     Route: 048
     Dates: start: 20171019, end: 20171025
  10. DOXORUBICIN TEVA [Suspect]
     Active Substance: DOXORUBICIN
     Indication: HODGKIN^S DISEASE
     Dosage: 35 MG/M2, CYCLIC
     Route: 041
     Dates: start: 20171019, end: 20171019

REACTIONS (1)
  - Pancytopenia [Recovered/Resolved]

NARRATIVE: CASE EVENT DATE: 20171030
